FAERS Safety Report 12785634 (Version 1)
Quarter: 2016Q3

REPORT INFORMATION
  Report Type: Spontaneous
  Country: US (occurrence: US)
  Receive Date: 20160927
  Receipt Date: 20160927
  Transmission Date: 20161109
  Serious: Yes (Other)
  Sender: FDA-Public Use
  Company Number: US-SA-2016SA172120

PATIENT
  Age: 72 Year
  Sex: Female

DRUGS (8)
  1. LANTUS SOLOSTAR [Suspect]
     Active Substance: INSULIN GLARGINE
     Indication: DIABETES MELLITUS
     Dosage: DOSE:40 UNIT(S)
     Route: 065
  2. SOLOSTAR [Concomitant]
     Active Substance: DEVICE
     Indication: DIABETES MELLITUS
  3. NOVOLOG [Concomitant]
     Active Substance: INSULIN ASPART
  4. HUMALOG [Concomitant]
     Active Substance: INSULIN LISPRO
  5. LANTUS SOLOSTAR [Suspect]
     Active Substance: INSULIN GLARGINE
     Indication: DIABETES MELLITUS
     Dosage: DOSE: 10 UNITS EVERY AM AND 40 UNITS EVERY PM..
     Route: 065
  6. SOLOSTAR [Concomitant]
     Active Substance: DEVICE
     Indication: DIABETES MELLITUS
  7. GLYBURIDE. [Concomitant]
     Active Substance: GLYBURIDE
  8. METFORMIN [Concomitant]
     Active Substance: METFORMIN HYDROCHLORIDE

REACTIONS (3)
  - Blood glucose increased [Unknown]
  - Off label use [Unknown]
  - Cardiac disorder [Unknown]
